FAERS Safety Report 23344001 (Version 1)
Quarter: 2023Q4

REPORT INFORMATION
  Report Type: Spontaneous
  Country: US (occurrence: US)
  Receive Date: 20231227
  Receipt Date: 20231227
  Transmission Date: 20240110
  Serious: No
  Sender: FDA-Public Use
  Company Number: US-SANDOZ-SDZ2023US072339

PATIENT
  Sex: Female

DRUGS (14)
  1. ACETAMINOPHEN [Suspect]
     Active Substance: ACETAMINOPHEN
     Indication: Mycobacterium avium complex infection
     Dosage: 500 MG
     Route: 065
  2. ALBUTEROL SULFATE [Suspect]
     Active Substance: ALBUTEROL SULFATE
     Indication: Mycobacterium avium complex infection
     Dosage: 90 UG /ACTUATION INHALER
     Route: 065
  3. AZITHROMYCIN [Suspect]
     Active Substance: AZITHROMYCIN
     Indication: Mycobacterium avium complex infection
     Dosage: 500 MG
     Route: 065
  4. ASPIRIN [Suspect]
     Active Substance: ASPIRIN
     Indication: Mycobacterium avium complex infection
     Dosage: 81 MG EC
     Route: 065
  5. CICLOPIROX [Suspect]
     Active Substance: CICLOPIROX\TOCOPHEROL
     Indication: Mycobacterium avium complex infection
     Dosage: UNK
     Route: 061
  6. CALCIUM CITRATE [Suspect]
     Active Substance: CALCIUM CITRATE
     Indication: Mycobacterium avium complex infection
     Dosage: 250 MG-5 MCG (200 UNIT)
     Route: 065
  7. ETHAMBUTOL [Suspect]
     Active Substance: ETHAMBUTOL HYDROCHLORIDE
     Indication: Mycobacterium avium complex infection
     Dosage: 100 MG
     Route: 065
  8. ETHAMBUTOL [Suspect]
     Active Substance: ETHAMBUTOL HYDROCHLORIDE
     Dosage: 400 MG
     Route: 065
  9. OXYCODONE [Suspect]
     Active Substance: OXYCODONE
     Indication: Mycobacterium avium complex infection
     Dosage: 5 MG
     Route: 065
  10. PRAVASTATIN [Suspect]
     Active Substance: PRAVASTATIN
     Indication: Mycobacterium avium complex infection
     Dosage: 20 MG
     Route: 065
  11. RESTASIS [Suspect]
     Active Substance: CYCLOSPORINE
     Indication: Mycobacterium avium complex infection
     Dosage: UNK
     Route: 065
  12. TERBINAFINE [Suspect]
     Active Substance: TERBINAFINE
     Indication: Mycobacterium avium complex infection
     Route: 065
  13. TERBINAFINE [Suspect]
     Active Substance: TERBINAFINE
     Indication: Mycobacterium avium complex infection
     Route: 065
  14. VITAMIN D3 [Suspect]
     Active Substance: CHOLECALCIFEROL
     Indication: Mycobacterium avium complex infection
     Dosage: 50 MCG (2,000 UNIT)
     Route: 065

REACTIONS (1)
  - Drug resistance [Unknown]
